FAERS Safety Report 9661295 (Version 1)
Quarter: 2013Q4

REPORT INFORMATION
  Report Type: Spontaneous
  Country: US (occurrence: None)
  Receive Date: 20131030
  Receipt Date: 20131030
  Transmission Date: 20140711
  Serious: No
  Sender: FDA-Public Use
  Company Number: 2013250924

PATIENT
  Age: 55 Year
  Sex: Female

DRUGS (5)
  1. FRAGMIN (DALTEPARIN SODIUM) SOLUTION FOR INJECTION [Suspect]
     Indication: PROPHYLAXIS
     Route: 058
     Dates: start: 20130821
  2. CELEBREX (CELECOXIB) [Concomitant]
  3. SYNTHROID (LEVOTHYROXINE SODIUM [Concomitant]
  4. PROGESTERONE (PROGESTERONE) [Concomitant]
  5. BUPROPION (BUPROPION) [Concomitant]

REACTIONS (1)
  - Injection site pain [None]
